FAERS Safety Report 5008895-8 (Version None)
Quarter: 2006Q2

REPORT INFORMATION
  Report Type: 
  Country: None (occurrence: None)
  Receive Date: 20060519
  Receipt Date: 20060508
  Transmission Date: 20061013
  Serious: Yes (Hospitalization)
  Sender: FDA-Public Use
  Company Number: S06-USA-00745-01

PATIENT
  Age: 56 Year
  Sex: Male
  Weight: 84.369 kg

DRUGS (9)
  1. CELEXA [Suspect]
     Indication: ANXIETY
     Dosage: 5 MG QD PO
     Dates: start: 20060207, end: 20060303
  2. CELEXA [Suspect]
     Indication: ANXIETY
     Dosage: 5 MG QD PO
     Route: 048
     Dates: start: 20060309, end: 20060426
  3. ATIVAN [Concomitant]
  4. LOPRESSOR [Concomitant]
  5. BECONASE (BECLOMETASONE DIPROPIONATE) [Concomitant]
  6. ACETAMINOPHEN [Concomitant]
  7. DULCOLAX [Concomitant]
  8. OSCAL 500/VITAMIN D [Concomitant]
  9. VITAMIN D [Concomitant]

REACTIONS (9)
  - BLOOD CREATININE INCREASED [None]
  - BLOOD UREA INCREASED [None]
  - CHEST PAIN [None]
  - DEHYDRATION [None]
  - DEPRESSED LEVEL OF CONSCIOUSNESS [None]
  - FALL [None]
  - HAEMATOCRIT DECREASED [None]
  - HAEMOGLOBIN DECREASED [None]
  - PLATELET COUNT DECREASED [None]
